FAERS Safety Report 16868838 (Version 1)
Quarter: 2019Q3

REPORT INFORMATION
  Report Type: Report from Study
  Country: US (occurrence: US)
  Receive Date: 20190930
  Receipt Date: 20190930
  Transmission Date: 20191005
  Serious: Yes (Disabling)
  Sender: FDA-Public Use
  Company Number: US-GILEAD-2019-0430508

PATIENT
  Age: 59 Year
  Sex: Male

DRUGS (7)
  1. TYLENOL [Concomitant]
     Active Substance: ACETAMINOPHEN
  2. VITAMIN D [VITAMIN D NOS] [Concomitant]
     Active Substance: VITAMIN D NOS
  3. ADVIL [IBUPROFEN] [Concomitant]
     Active Substance: IBUPROFEN
  4. SOFOSBUVIR W/VELPATASVIR [Suspect]
     Active Substance: SOFOSBUVIR\VELPATASVIR
     Indication: HEPATITIS C
     Dosage: 1 DOSAGE FORM, QD
     Route: 048
     Dates: start: 201908
  5. IRON [Concomitant]
     Active Substance: IRON
  6. MELOXICAM. [Concomitant]
     Active Substance: MELOXICAM
  7. LISINOPRIL. [Concomitant]
     Active Substance: LISINOPRIL

REACTIONS (7)
  - Dysphemia [Not Recovered/Not Resolved]
  - Pain [Not Recovered/Not Resolved]
  - Arthropathy [Unknown]
  - Migraine [Not Recovered/Not Resolved]
  - Asthenia [Not Recovered/Not Resolved]
  - Memory impairment [Unknown]
  - Vision blurred [Not Recovered/Not Resolved]

NARRATIVE: CASE EVENT DATE: 201908
